FAERS Safety Report 5085662-0 (Version None)
Quarter: 2006Q3

REPORT INFORMATION
  Report Type: 
  Country: None (occurrence: None)
  Receive Date: 20060822
  Receipt Date: 20060601
  Transmission Date: 20061208
  Serious: Yes (Other)
  Sender: FDA-Public Use
  Company Number: US-ROCHE-450488

PATIENT
  Age: 83 Year
  Sex: Female
  Weight: 63.5 kg

DRUGS (5)
  1. BONIVA [Suspect]
     Indication: OSTEOPOROSIS
     Route: 048
     Dates: start: 20050915
  2. ZOCOR [Concomitant]
     Route: 048
  3. LISINOPRIL [Concomitant]
     Indication: BLOOD PRESSURE INCREASED
     Route: 048
  4. SYNTHROID [Concomitant]
     Indication: THERAPEUTIC PROCEDURE
     Route: 048
  5. FOSAMAX [Concomitant]
     Dosage: WAS TREATED WITH FOSAMAX BEFORE TREATMENT WITH IBANDRONIC ACID STARTED
     Dates: start: 20010615

REACTIONS (5)
  - BONE DISORDER [None]
  - DENTAL CARIES [None]
  - PAIN IN JAW [None]
  - RESORPTION BONE INCREASED [None]
  - TOOTH DISORDER [None]
